FAERS Safety Report 5269003-1 (Version None)
Quarter: 2007Q1

REPORT INFORMATION
  Report Type: 
  Country: None (occurrence: None)
  Receive Date: 20070319
  Receipt Date: 20070307
  Transmission Date: 20070707
  Serious: Yes (Hospitalization, Disabling)
  Sender: FDA-Public Use
  Company Number: US-SANOFI-SYNTHELABO-A03200701795

PATIENT
  Sex: Male

DRUGS (9)
  1. TOPROL-XL [Concomitant]
     Dosage: UNK
     Route: 048
  2. ASPIRIN [Concomitant]
     Dosage: UNK
     Route: 048
  3. PLAVIX [Suspect]
     Indication: STENT PLACEMENT
     Dosage: UNK
     Route: 048
     Dates: start: 20061101, end: 20070201
  4. PERCOCET [Concomitant]
     Dosage: 5/325 MG 1 TO 2 TABLET Q4H PRN
     Route: 048
  5. ROBAXIN [Concomitant]
     Route: 048
  6. MIRALAX [Concomitant]
     Dosage: UNK
     Route: 048
  7. PROTONIX [Concomitant]
     Route: 048
  8. LEVEMIR [Concomitant]
     Route: 058
  9. SYNTHROID [Concomitant]
     Route: 048

REACTIONS (8)
  - CHEST PAIN [None]
  - EXTRADURAL HAEMATOMA [None]
  - HYPOAESTHESIA [None]
  - NAUSEA [None]
  - OPERATIVE HAEMORRHAGE [None]
  - PARAPLEGIA [None]
  - PULMONARY EMBOLISM [None]
  - URINARY RETENTION [None]
